FAERS Safety Report 11843979 (Version 1)
Quarter: 2015Q4

REPORT INFORMATION
  Report Type: Spontaneous
  Country: US (occurrence: None)
  Receive Date: 20151216
  Receipt Date: 20151216
  Transmission Date: 20160305
  Serious: Yes (Hospitalization)
  Sender: FDA-Public Use
  Company Number: None

PATIENT
  Age: 69 Year
  Sex: Male
  Weight: 103.2 kg

DRUGS (4)
  1. LEVOFLOXACIN. [Suspect]
     Active Substance: LEVOFLOXACIN
     Indication: TENDON RUPTURE
     Route: 048
     Dates: start: 20150507, end: 20150508
  2. LEVOFLOXACIN. [Suspect]
     Active Substance: LEVOFLOXACIN
     Indication: PAIN
     Route: 048
     Dates: start: 20150507, end: 20150508
  3. LEVOFLOXACIN. [Suspect]
     Active Substance: LEVOFLOXACIN
     Indication: PAIN IN EXTREMITY
     Route: 048
     Dates: start: 20150507, end: 20150508
  4. LEVOFLOXACIN. [Suspect]
     Active Substance: LEVOFLOXACIN
     Indication: TENDONITIS
     Route: 048
     Dates: start: 20150507, end: 20150508

REACTIONS (4)
  - Tendon rupture [None]
  - Gait disturbance [None]
  - Hypoglycaemia [None]
  - Pain in extremity [None]

NARRATIVE: CASE EVENT DATE: 20150508
